FAERS Safety Report 11753044 (Version 1)
Quarter: 2015Q4

REPORT INFORMATION
  Report Type: Spontaneous
  Country: US (occurrence: US)
  Receive Date: 20151119
  Receipt Date: 20151119
  Transmission Date: 20160304
  Serious: Yes (Other)
  Sender: FDA-Public Use
  Company Number: US-SUN PHARMACEUTICAL INDUSTRIES LTD-2015US-106236

PATIENT
  Sex: Female

DRUGS (1)
  1. ABSORICA [Suspect]
     Active Substance: ISOTRETINOIN
     Indication: ACNE
     Dosage: UNK
     Route: 065
     Dates: start: 20140528, end: 20141101

REACTIONS (5)
  - Suicidal ideation [Unknown]
  - Depression [Unknown]
  - Scar [Unknown]
  - Haemorrhage [Unknown]
  - Acne [Unknown]

NARRATIVE: CASE EVENT DATE: 2015
